FAERS Safety Report 4811059-1 (Version None)
Quarter: 2005Q4

REPORT INFORMATION
  Report Type: 
  Country: None (occurrence: None)
  Receive Date: 20051025
  Receipt Date: 20051012
  Transmission Date: 20060501
  Serious: Yes (Other)
  Sender: FDA-Public Use
  Company Number: 2005141945

PATIENT
  Sex: Female

DRUGS (4)
  1. ZITHROMAX [Suspect]
     Indication: HUMAN EHRLICHIOSIS
     Dosage: 250 MG, DAILY, ORAL
     Route: 048
  2. ZITHROMAX [Suspect]
     Indication: INFECTION
     Dosage: 250 MG, DAILY, ORAL
     Route: 048
  3. ZITHROMAX [Suspect]
     Indication: LYME DISEASE
     Dosage: 250 MG, DAILY, ORAL
     Route: 048
  4. DOXYCYCLINE [Suspect]
     Indication: ILL-DEFINED DISORDER

REACTIONS (12)
  - ABDOMINAL PAIN UPPER [None]
  - ANAL DISCOMFORT [None]
  - DIARRHOEA [None]
  - DIZZINESS [None]
  - HUMAN EHRLICHIOSIS [None]
  - HYPOKINESIA [None]
  - LYME DISEASE [None]
  - LYMPH GLAND INFECTION [None]
  - MALAISE [None]
  - OESOPHAGEAL ULCER [None]
  - VERTIGO [None]
  - VOMITING [None]
